FAERS Safety Report 8827936 (Version 1)
Quarter: 2012Q4

REPORT INFORMATION
  Report Type: 
  Country: GB (occurrence: GB)
  Receive Date: 20121005
  Receipt Date: 20121005
  Transmission Date: 20130627
  Serious: Yes (Other)
  Sender: FDA-Public Use
  Company Number: GB-TEVA-361606ISR

PATIENT
  Age: 63 Year
  Sex: Female
  Weight: 74.38 kg

DRUGS (8)
  1. ATORVASTATIN [Suspect]
     Dosage: Prescription was changed from Lipitor to Teva
     Route: 048
     Dates: start: 20120626, end: 20120628
  2. LEVOTHYROXINE [Suspect]
     Indication: HYPOTHYROIDISM
     Route: 048
     Dates: start: 20120626
  3. LEVOTHYROXINE [Suspect]
     Indication: HYPOTHYROIDISM
     Route: 048
     Dates: start: 2012
  4. LEVOTHYROXINE [Suspect]
     Indication: HYPOTHYROIDISM
     Route: 048
     Dates: start: 2012, end: 20120723
  5. MULTIVITAMIN [Concomitant]
  6. OMEGA-3 FISH OIL [Concomitant]
  7. EVENING PRIMROSE OIL [Concomitant]
  8. LIPITOR [Concomitant]

REACTIONS (7)
  - Hypothyroidism [Not Recovered/Not Resolved]
  - Blood thyroid stimulating hormone increased [Not Recovered/Not Resolved]
  - Arthralgia [Not Recovered/Not Resolved]
  - Depression [Unknown]
  - Headache [Unknown]
  - Fatigue [Unknown]
  - Myalgia [Not Recovered/Not Resolved]
